FAERS Safety Report 19389452 (Version 1)
Quarter: 2021Q2

REPORT INFORMATION
  Report Type: Spontaneous
  Country: QA (occurrence: QA)
  Receive Date: 20210608
  Receipt Date: 20210608
  Transmission Date: 20210717
  Serious: Yes (Hospitalization)
  Sender: FDA-Public Use
  Company Number: QA-LUPIN PHARMACEUTICALS INC.-2021-08877

PATIENT
  Age: 12 Year
  Sex: Male

DRUGS (2)
  1. CETIRIZINE [Suspect]
     Active Substance: CETIRIZINE HYDROCHLORIDE
     Indication: VENOMOUS STING
     Dosage: UNK, FOR A DAY
     Route: 048
  2. HYDROCORTISONE. [Suspect]
     Active Substance: HYDROCORTISONE
     Indication: VENOMOUS STING
     Dosage: UNK, FOR A DAY
     Route: 061

REACTIONS (2)
  - Drug ineffective [Unknown]
  - Intentional product misuse to child [Unknown]
